FAERS Safety Report 24685450 (Version 1)
Quarter: 2024Q4

REPORT INFORMATION
  Report Type: Spontaneous
  Country: NZ (occurrence: NZ)
  Receive Date: 20241202
  Receipt Date: 20241202
  Transmission Date: 20250115
  Serious: Yes (Death)
  Sender: BOEHRINGER INGELHEIM
  Company Number: NZ-BoehringerIngelheim-2024-BI-065711

PATIENT
  Age: 68 Year
  Sex: Male
  Weight: 51 kg

DRUGS (1)
  1. JARDIANCE [Suspect]
     Active Substance: EMPAGLIFLOZIN
     Indication: Type 2 diabetes mellitus
     Dates: start: 20211224

REACTIONS (3)
  - Diabetic ketoacidosis [Fatal]
  - Arteriosclerosis coronary artery [Fatal]
  - Pneumonia [Fatal]

NARRATIVE: CASE EVENT DATE: 20230721
